FAERS Safety Report 8830548 (Version 1)
Quarter: 2012Q4

REPORT INFORMATION
  Report Type: 
  Country: ES (occurrence: ES)
  Receive Date: 20121009
  Receipt Date: 20121009
  Transmission Date: 20130627
  Serious: Yes (Other)
  Sender: FDA-Public Use
  Company Number: ES-CELGENEUS-144-21880-12093270

PATIENT

DRUGS (5)
  1. REVLIMID [Suspect]
     Indication: MULTIPLE MYELOMA
     Route: 048
     Dates: start: 200805, end: 201009
  2. REVLIMID [Suspect]
     Indication: MDS
  3. LOW MOLECULAR WEIGHT HEPARIN [Concomitant]
     Indication: THROMBOSIS PROPHYLAXIS
     Route: 065
  4. ERYTHROPOIETIC FACTORS [Concomitant]
     Indication: DRUG USE FOR UNKNOWN INDICATION
  5. ANTICOAGULANTS [Concomitant]
     Indication: THROMBOSIS PROPHYLAXIS
     Route: 048

REACTIONS (2)
  - Embolism arterial [Unknown]
  - Embolism venous [Unknown]
